FAERS Safety Report 5526261-3 (Version None)
Quarter: 2007Q4

REPORT INFORMATION
  Report Type: 
  Country: None (occurrence: None)
  Receive Date: 20071127
  Receipt Date: 20071116
  Transmission Date: 20080405
  Serious: Yes (Hospitalization)
  Sender: FDA-Public Use
  Company Number: FR-JNJFOC-20071106777

PATIENT
  Age: 75 Year
  Sex: Male

DRUGS (9)
  1. OFLOCET [Suspect]
     Indication: LIVER ABSCESS
     Route: 048
     Dates: start: 20070414, end: 20070809
  2. FLAGYL [Suspect]
     Indication: LIVER ABSCESS
     Route: 048
     Dates: start: 20070423, end: 20070720
  3. TAHOR [Concomitant]
     Route: 065
  4. NEORAL [Concomitant]
     Route: 065
  5. AMLOR [Concomitant]
     Route: 065
  6. URBANYL [Concomitant]
     Indication: CONVULSION
     Route: 065
  7. ROCEPHIN [Concomitant]
     Indication: LIVER ABSCESS
     Route: 065
  8. VITAMIN B1 [Concomitant]
     Route: 065
  9. VITAMIN B6 [Concomitant]
     Route: 065

REACTIONS (1)
  - CEREBELLAR SYNDROME [None]
